FAERS Safety Report 18030342 (Version 1)
Quarter: 2020Q3

REPORT INFORMATION
  Report Type: Spontaneous
  Country: US (occurrence: US)
  Receive Date: 20200715
  Receipt Date: 20200715
  Transmission Date: 20201103
  Serious: No
  Sender: FDA-Public Use
  Company Number: US-OPTINOSE US, INC-2020OPT000319

PATIENT
  Sex: Female

DRUGS (1)
  1. XHANCE [Suspect]
     Active Substance: FLUTICASONE PROPIONATE
     Indication: SINUSITIS
     Route: 045
     Dates: start: 202004

REACTIONS (2)
  - Product use in unapproved indication [Unknown]
  - Upper-airway cough syndrome [Unknown]

NARRATIVE: CASE EVENT DATE: 202004
